FAERS Safety Report 6137305-2 (Version None)
Quarter: 2009Q1

REPORT INFORMATION
  Report Type: 
  Country: None (occurrence: None)
  Receive Date: 20090330
  Receipt Date: 20090324
  Transmission Date: 20090719
  Serious: Yes (Hospitalization, Other)
  Sender: FDA-Public Use
  Company Number: ES-ROXANE LABORATORIES, INC.-2009-RO-00277RO

PATIENT
  Age: 54 Year
  Sex: Male

DRUGS (6)
  1. ZIDOVUDINE [Suspect]
     Indication: HIV INFECTION CDC CATEGORY B2
  2. FLUTICASONE PROPIONATE [Suspect]
     Indication: BRONCHOSPASM
     Route: 055
  3. LAMIVUDINE [Suspect]
     Indication: HIV INFECTION CDC CATEGORY B2
  4. LOPINAVIR AND RITONAVIR [Suspect]
     Indication: HIV INFECTION CDC CATEGORY B2
  5. SALMETEROL [Suspect]
     Indication: BRONCHOSPASM
  6. SYNACTHEN [Concomitant]
     Indication: ACTH STIMULATION TEST

REACTIONS (4)
  - BRONCHOSPASM [None]
  - CUSHING'S SYNDROME [None]
  - DRUG INTERACTION [None]
  - LOWER RESPIRATORY TRACT INFECTION [None]
